FAERS Safety Report 4777920-1 (Version None)
Quarter: 2005Q3

REPORT INFORMATION
  Report Type: 
  Country: None (occurrence: None)
  Receive Date: 20050921
  Receipt Date: 20050902
  Transmission Date: 20060218
  Serious: Yes (Hospitalization)
  Sender: FDA-Public Use
  Company Number: DE_050916857

PATIENT
  Age: 44 Year
  Sex: Male

DRUGS (4)
  1. ZYPREXA [Suspect]
     Indication: AFFECTIVE DISORDER
     Dosage: 5 MG/1 IN THE EVENING
     Route: 048
     Dates: end: 20050827
  2. CITALOPRAM [Concomitant]
  3. MELNEURIN      (MELPERONE HYDROCHLORIDE) [Concomitant]
  4. OXYBUTYNIN [Concomitant]

REACTIONS (7)
  - ABASIA [None]
  - ASTHENIA [None]
  - CONFUSIONAL STATE [None]
  - FALL [None]
  - FATIGUE [None]
  - RENAL FAILURE ACUTE [None]
  - RHABDOMYOLYSIS [None]
